FAERS Safety Report 10406876 (Version 3)
Quarter: 2014Q4

REPORT INFORMATION
  Report Type: Report from Study
  Country: TR (occurrence: TR)
  Receive Date: 20140825
  Receipt Date: 20141107
  Transmission Date: 20150528
  Serious: No
  Sender: FDA-Public Use
  Company Number: TR-US-EMD SERONO, INC.-7313421

PATIENT
  Sex: Female

DRUGS (4)
  1. PAROL [Concomitant]
     Active Substance: ACETAMINOPHEN
     Indication: ANALGESIC THERAPY
     Route: 048
     Dates: start: 20140305, end: 20140805
  2. REBIF [Suspect]
     Active Substance: INTERFERON BETA-1A
     Dates: end: 20141024
  3. PAROL [Concomitant]
     Active Substance: ACETAMINOPHEN
     Indication: PYREXIA
  4. REBIF [Suspect]
     Active Substance: INTERFERON BETA-1A
     Indication: MULTIPLE SCLEROSIS
     Route: 058
     Dates: start: 20140305, end: 20140805

REACTIONS (1)
  - Maternal exposure during pregnancy [Unknown]
